FAERS Safety Report 8556051 (Version 4)
Quarter: 2014Q2

REPORT INFORMATION
  Report Type: Spontaneous
  Country: US (occurrence: US)
  Receive Date: 20120510
  Receipt Date: 20140516
  Transmission Date: 20141212
  Serious: Yes (Hospitalization, Disabling, Other)
  Sender: FDA-Public Use
  Company Number: US-BAYER-2012-043654

PATIENT
  Age: 50 Year
  Sex: Female
  Weight: 54.42 kg

DRUGS (7)
  1. YASMIN [Suspect]
     Indication: CONTRACEPTION
     Dosage: UNK
     Dates: start: 200511, end: 200709
  2. YASMIN [Suspect]
     Indication: MENORRHAGIA
  3. YAZ [Suspect]
     Indication: CONTRACEPTION
     Dosage: UNK
     Dates: start: 200709, end: 20111204
  4. YAZ [Suspect]
     Indication: MENORRHAGIA
  5. SYNTHROID [Concomitant]
     Dosage: 100 MG, UNK
     Route: 048
  6. TRICOR [Concomitant]
     Dosage: 400 MG, UNK
     Route: 048
  7. LEVOTHYROXINE [Concomitant]

REACTIONS (5)
  - Haemorrhagic transformation stroke [None]
  - Embolic stroke [None]
  - Cerebrovascular accident [None]
  - Aphasia [None]
  - Mental disorder [None]
